FAERS Safety Report 4636534-4 (Version None)
Quarter: 2005Q2

REPORT INFORMATION
  Report Type: 
  Country: None (occurrence: None)
  Receive Date: 20050415
  Receipt Date: 20050323
  Transmission Date: 20051028
  Serious: Yes (Other)
  Sender: FDA-Public Use
  Company Number: JP-GLAXOSMITHKLINE-B0375962A

PATIENT
  Age: 70 Year
  Sex: Male
  Weight: 60 kg

DRUGS (4)
  1. ZANTAC [Suspect]
     Indication: PREMEDICATION
     Route: 042
     Dates: start: 20050323, end: 20050323
  2. LOXONIN [Concomitant]
     Indication: ARTHRALGIA
     Route: 048
     Dates: start: 20050301
  3. ORGADRONE [Concomitant]
     Dosage: 1U PER DAY
     Route: 042
     Dates: start: 20030323, end: 20050323
  4. MUCOSTA [Concomitant]
     Indication: ARTHRALGIA
     Dosage: 3U PER DAY
     Route: 048
     Dates: start: 20050301

REACTIONS (5)
  - ANAPHYLACTOID REACTION [None]
  - CONJUNCTIVAL HYPERAEMIA [None]
  - DYSPNOEA [None]
  - ERYTHEMA [None]
  - LACRIMATION INCREASED [None]
